FAERS Safety Report 5644461-9 (Version None)
Quarter: 2008Q1

REPORT INFORMATION
  Report Type: 
  Country: None (occurrence: None)
  Receive Date: 20080229
  Receipt Date: 20070108
  Transmission Date: 20080703
  Serious: No
  Sender: FDA-Public Use
  Company Number: A0634755A

PATIENT
  Age: 23 Year
  Sex: Female

DRUGS (1)
  1. VALTREX [Suspect]
     Dosage: 2G UNKNOWN
     Route: 048

REACTIONS (1)
  - URTICARIA [None]
